FAERS Safety Report 15848449 (Version 1)
Quarter: 2019Q1

REPORT INFORMATION
  Report Type: Spontaneous
  Country: US (occurrence: US)
  Receive Date: 20190121
  Receipt Date: 20190121
  Transmission Date: 20190417
  Serious: No
  Sender: FDA-Public Use
  Company Number: US-PFIZER INC-2019019671

PATIENT
  Age: 77 Year
  Sex: Female
  Weight: 46.72 kg

DRUGS (2)
  1. XALKORI [Suspect]
     Active Substance: CRIZOTINIB
     Indication: LUNG NEOPLASM MALIGNANT
     Dosage: 250 MG, UNK
     Dates: start: 201812
  2. METOPROLOL. [Concomitant]
     Active Substance: METOPROLOL
     Indication: PULSE ABNORMAL
     Dosage: UNK

REACTIONS (1)
  - Hypotension [Not Recovered/Not Resolved]
